FAERS Safety Report 9172531 (Version 7)
Quarter: 2017Q2

REPORT INFORMATION
  Report Type: Spontaneous
  Country: US (occurrence: US)
  Receive Date: 20130319
  Receipt Date: 20170406
  Transmission Date: 20170830
  Serious: Yes (Disabling)
  Sender: FDA-Public Use
  Company Number: US-009507513-1303USA007563

PATIENT
  Sex: Male
  Weight: 80.73 kg

DRUGS (2)
  1. PROPECIA [Suspect]
     Active Substance: FINASTERIDE
     Indication: ALOPECIA
     Dosage: 1 MG, QD
     Route: 048
     Dates: start: 2001, end: 201208
  2. FINASTERIDE. [Suspect]
     Active Substance: FINASTERIDE
     Indication: ALOPECIA
     Dosage: UNK
     Dates: start: 2001, end: 201208

REACTIONS (26)
  - Anxiety disorder [Unknown]
  - Cognitive disorder [Unknown]
  - Libido decreased [Not Recovered/Not Resolved]
  - Libido decreased [Unknown]
  - Depression [Not Recovered/Not Resolved]
  - Hyperlipidaemia [Not Recovered/Not Resolved]
  - Testicular pain [Unknown]
  - Malaise [Not Recovered/Not Resolved]
  - Insomnia [Unknown]
  - Epstein-Barr virus infection [Unknown]
  - Hair transplant [Unknown]
  - Ejaculation failure [Unknown]
  - Hernia [Unknown]
  - Drug ineffective [Unknown]
  - Erectile dysfunction [Unknown]
  - Primary hypogonadism [Not Recovered/Not Resolved]
  - Dysphonia [Unknown]
  - Gynaecomastia [Unknown]
  - Vitamin D deficiency [Unknown]
  - Bronchitis [Unknown]
  - Seasonal affective disorder [Unknown]
  - Limb injury [Unknown]
  - Small intestine polyp [Unknown]
  - Hyperglycaemia [Unknown]
  - Hyperprolactinaemia [Not Recovered/Not Resolved]
  - Dyspnoea paroxysmal nocturnal [Unknown]

NARRATIVE: CASE EVENT DATE: 2001
